FAERS Safety Report 7295750-6 (Version None)
Quarter: 2011Q1

REPORT INFORMATION
  Report Type: 
  Country: None (occurrence: None)
  Receive Date: 20110211
  Receipt Date: 20110211
  Transmission Date: 20110831
  Serious: No
  Sender: FDA-Public Use
  Company Number: None

PATIENT
  Sex: Female

DRUGS (1)
  1. FERAHEME [Suspect]
     Indication: RENAL FAILURE CHRONIC
     Dosage: 510 MG DI - IV
     Route: 042
     Dates: start: 20110124

REACTIONS (3)
  - SNEEZING [None]
  - SWELLING FACE [None]
  - ERYTHEMA [None]
